FAERS Safety Report 19323069 (Version 2)
Quarter: 2023Q4

REPORT INFORMATION
  Report Type: Report from Study
  Country: US (occurrence: US)
  Receive Date: 20210528
  Receipt Date: 20231020
  Transmission Date: 20240109
  Serious: No
  Sender: FDA-Public Use
  Company Number: US-SANOFI-00611331

PATIENT
  Age: 53 Year
  Sex: Male

DRUGS (13)
  1. TERIFLUNOMIDE [Suspect]
     Active Substance: TERIFLUNOMIDE
     Indication: Multiple sclerosis
     Dosage: SPLITTING A 14 MG TAB IN HALF
  2. TERIFLUNOMIDE [Suspect]
     Active Substance: TERIFLUNOMIDE
     Dosage: UNK
     Route: 048
     Dates: start: 20210517
  3. COPAXONE [Concomitant]
     Active Substance: GLATIRAMER ACETATE
  4. HYDROCHLOROTHIAZIDE [Concomitant]
     Active Substance: HYDROCHLOROTHIAZIDE
  5. BENAZEPRIL [Concomitant]
     Active Substance: BENAZEPRIL HYDROCHLORIDE
  6. FOLIC ACID [Concomitant]
     Active Substance: FOLIC ACID
  7. VITAMIN D3 [Concomitant]
     Active Substance: CHOLECALCIFEROL
  8. BIOTIN [Concomitant]
     Active Substance: BIOTIN
  9. FISH OIL [Concomitant]
     Active Substance: FISH OIL
  10. BACLOFEN [Concomitant]
     Active Substance: BACLOFEN
  11. AMLODIPINE [Concomitant]
     Active Substance: AMLODIPINE BESYLATE
  12. CARVEDILOL [Concomitant]
     Active Substance: CARVEDILOL
  13. ASPIRIN [Concomitant]
     Active Substance: ASPIRIN

REACTIONS (4)
  - Diarrhoea [Recovering/Resolving]
  - Alanine aminotransferase abnormal [Unknown]
  - Incorrect dose administered [Unknown]
  - Wrong technique in product usage process [Unknown]

NARRATIVE: CASE EVENT DATE: 20231001
